FAERS Safety Report 10222591 (Version 1)
Quarter: 2014Q2

REPORT INFORMATION
  Report Type: Spontaneous
  Country: IR (occurrence: IR)
  Receive Date: 20140606
  Receipt Date: 20140606
  Transmission Date: 20141212
  Serious: Yes (Other)
  Sender: FDA-Public Use
  Company Number: IR-LUNDBECK-DKLU1100582

PATIENT
  Sex: 0

DRUGS (1)
  1. VIGABATRIN (TABLET) [Suspect]
     Indication: EPILEPSY

REACTIONS (1)
  - Visual impairment [Unknown]
